FAERS Safety Report 5793013-9 (Version None)
Quarter: 2008Q2

REPORT INFORMATION
  Report Type: 
  Country: None (occurrence: None)
  Receive Date: 20080627
  Receipt Date: 20080625
  Transmission Date: 20081010
  Serious: Yes (Life-Threatening, Hospitalization)
  Sender: FDA-Public Use
  Company Number: PHEH2008US05705

PATIENT
  Age: 72 Year
  Sex: Female
  Weight: 61.224 kg

DRUGS (1)
  1. DIOVAN [Suspect]
     Dosage: 320 MG, QD
     Route: 048
     Dates: start: 20070601, end: 20080601

REACTIONS (3)
  - ASTHMA [None]
  - CHEST PAIN [None]
  - DYSPNOEA [None]
